FAERS Safety Report 9241543 (Version 3)
Quarter: 2013Q2

REPORT INFORMATION
  Report Type: Spontaneous
  Country: US (occurrence: US)
  Receive Date: 20130419
  Receipt Date: 20130506
  Transmission Date: 20140414
  Serious: No
  Sender: FDA-Public Use
  Company Number: US-009507513-1304USA006690

PATIENT
  Sex: Male
  Weight: 79.37 kg

DRUGS (3)
  1. CLARITIN [Suspect]
     Indication: HYPERSENSITIVITY
     Dosage: 20 MG, QD
     Route: 048
  2. CLARITIN [Suspect]
     Indication: SNEEZING
  3. CLARITIN [Suspect]
     Indication: MEDICAL OBSERVATION

REACTIONS (6)
  - Vision blurred [Unknown]
  - Asthenia [Unknown]
  - Pruritus [Recovered/Resolved]
  - Erythema [Recovered/Resolved]
  - Gastric disorder [Recovered/Resolved]
  - Drug ineffective [Unknown]
